FAERS Safety Report 9670265 (Version 1)
Quarter: 2013Q4

REPORT INFORMATION
  Report Type: Other
  Country: FR (occurrence: FR)
  Receive Date: 20131105
  Receipt Date: 20131105
  Transmission Date: 20140711
  Serious: Yes (Hospitalization)
  Sender: FDA-Public Use
  Company Number: FR-CUBIST PHARMACEUTICALS, INC.-2013CBST001084

PATIENT
  Sex: 0

DRUGS (14)
  1. CUBICIN [Suspect]
     Indication: PRODUCT USED FOR UNKNOWN INDICATION
     Dosage: 5 MG/KG, QD, INJECTION
     Route: 065
     Dates: start: 20130826, end: 20130904
  2. VANCOMYCIN [Suspect]
     Indication: PRODUCT USED FOR UNKNOWN INDICATION
     Dosage: 1.25 G, Q12H, INJECTION NOS
     Route: 065
     Dates: start: 20130801, end: 20130826
  3. CONTRAMAL [Suspect]
     Indication: PRODUCT USED FOR UNKNOWN INDICATION
     Dosage: 100 MG, BID
     Route: 048
     Dates: start: 20130801
  4. ZYVOXID [Suspect]
     Indication: PRODUCT USED FOR UNKNOWN INDICATION
     Dosage: 600 MG, BID
     Route: 048
     Dates: start: 20130812, end: 20130814
  5. TAZOCILLINE [Suspect]
     Indication: PRODUCT USED FOR UNKNOWN INDICATION
     Dosage: 4.5 G, Q8H (INJECTION NOS)
     Route: 065
     Dates: start: 20130801, end: 20130904
  6. TAZOCILLINE [Suspect]
     Dosage: 12 G, QD
     Route: 065
     Dates: start: 20130820, end: 20130904
  7. INEXIUM /01479302/ [Suspect]
     Indication: PRODUCT USED FOR UNKNOWN INDICATION
     Dosage: 40 MG, QD
     Route: 048
     Dates: start: 20130801
  8. MORPHINE [Suspect]
     Indication: PRODUCT USED FOR UNKNOWN INDICATION
     Dosage: 7.5 MG, Q6H
     Route: 058
     Dates: start: 20130801, end: 20130805
  9. ACUPAN [Suspect]
     Indication: PRODUCT USED FOR UNKNOWN INDICATION
     Dosage: 20 MG, QID, INJECTION
     Route: 065
     Dates: start: 20130801
  10. PERFALGAN [Concomitant]
     Indication: PRODUCT USED FOR UNKNOWN INDICATION
     Dosage: UNK UNK, UNK
     Route: 065
     Dates: start: 20130801, end: 20130804
  11. PARACETAMOL [Concomitant]
     Indication: PRODUCT USED FOR UNKNOWN INDICATION
     Dosage: 3 G, PRN (DAILY)
     Route: 065
  12. NICOPATCH [Concomitant]
     Indication: PRODUCT USED FOR UNKNOWN INDICATION
     Dosage: 1 DF, QD
     Route: 065
  13. SIFROL [Concomitant]
     Indication: PRODUCT USED FOR UNKNOWN INDICATION
     Dosage: UNK UNK UNK
     Route: 065
  14. LOVENOX [Concomitant]
     Indication: PRODUCT USED FOR UNKNOWN INDICATION
     Dosage: 4000 IU/I, UNK
     Route: 065

REACTIONS (4)
  - Liver injury [Recovering/Resolving]
  - Rash [Recovered/Resolved]
  - Eosinophilia [Recovering/Resolving]
  - Pyrexia [Unknown]
